FAERS Safety Report 9706398 (Version 1)
Quarter: 2013Q4

REPORT INFORMATION
  Report Type: Spontaneous
  Country: US (occurrence: US)
  Receive Date: 20131125
  Receipt Date: 20131125
  Transmission Date: 20140711
  Serious: Yes (Hospitalization)
  Sender: FDA-Public Use
  Company Number: US-BIOGENIDEC-2013BI111334

PATIENT
  Sex: Female

DRUGS (3)
  1. TECFIDERA [Suspect]
     Indication: MULTIPLE SCLEROSIS
  2. CEPHALEXIN [Concomitant]
     Indication: INFECTION
  3. DECLOMYCIN [Concomitant]
     Indication: INFECTION

REACTIONS (1)
  - Gastric disorder [Recovered/Resolved]
